FAERS Safety Report 9942382 (Version 1)
Quarter: 2014Q1

REPORT INFORMATION
  Report Type: Spontaneous
  Country: US (occurrence: US)
  Receive Date: 20140303
  Receipt Date: 20140303
  Transmission Date: 20141002
  Serious: No
  Sender: FDA-Public Use
  Company Number: US-PFIZER INC-2014060095

PATIENT
  Sex: Male

DRUGS (1)
  1. QUILLIVANT XR [Suspect]
     Dosage: UNK
     Dates: start: 201312

REACTIONS (3)
  - Incorrect product storage [Unknown]
  - Feeling abnormal [Unknown]
  - Emotional disorder [Unknown]
